FAERS Safety Report 4459483-3 (Version None)
Quarter: 2004Q3

REPORT INFORMATION
  Report Type: 
  Country: None (occurrence: None)
  Receive Date: 20040910
  Receipt Date: 20040614
  Transmission Date: 20050211
  Serious: Yes (Other)
  Sender: FDA-Public Use
  Company Number: 2004202557US

PATIENT
  Age: 57 Year
  Sex: Female
  Weight: 110.7 kg

DRUGS (9)
  1. BEXTRA [Suspect]
     Indication: OSTEOARTHRITIS
     Dosage: 10 MG, QD, ORAL
     Route: 048
     Dates: start: 20040129, end: 20040215
  2. ATENOLOL [Concomitant]
  3. NEXIUM [Concomitant]
  4. KLONOPIN [Concomitant]
  5. PAXIL [Concomitant]
  6. LIPITOR [Concomitant]
  7. GLUCOPHAGE [Concomitant]
  8. MECLIZINE [Concomitant]
  9. ASPIRIN [Concomitant]

REACTIONS (4)
  - ANXIETY [None]
  - BLOOD PRESSURE INCREASED [None]
  - FEELING ABNORMAL [None]
  - GASTROINTESTINAL DISORDER [None]
